FAERS Safety Report 6684060-3 (Version None)
Quarter: 2010Q2

REPORT INFORMATION
  Report Type: 
  Country: None (occurrence: None)
  Receive Date: 20100416
  Receipt Date: 20100407
  Transmission Date: 20101027
  Serious: Yes (Other)
  Sender: FDA-Public Use
  Company Number: AU-ASTRAZENECA-2010SE15693

PATIENT
  Sex: Female

DRUGS (6)
  1. SEROQUEL [Suspect]
     Indication: PSYCHOTIC DISORDER
     Dosage: 50-100 MG/DAY AT 11/40 WEEKS OF GESTATION
     Route: 048
  2. VALPROATE SODIUM [Concomitant]
     Indication: AFFECTIVE DISORDER
     Dosage: 1000 MG/DAY ON PREPREGNANCY AT 10/40 WEEKS OF GESTATION
  3. VALPROATE SODIUM [Concomitant]
     Indication: CONVULSION
     Dosage: 1000 MG/DAY ON PREPREGNANCY AT 10/40 WEEKS OF GESTATION
  4. LEXAPRO [Concomitant]
     Indication: DEPRESSION
     Dosage: 10 MG/DAY ON PREPREGNANCY AT 10/40 WEEKS OF GESTATION
  5. LAMOTRIGINE [Concomitant]
     Indication: CONVULSION
     Dosage: 200 MG/DAY AT 11/40 WEEKS OF GESTATION
  6. FEFOL [Concomitant]
     Indication: SUPPLEMENTATION THERAPY
     Dosage: 1 TABLET PER DAY FROM FIRST TRIMESTER

REACTIONS (2)
  - DRUG EXPOSURE DURING PREGNANCY [None]
  - STILLBIRTH [None]
